FAERS Safety Report 4737389-X (Version None)
Quarter: 2005Q3

REPORT INFORMATION
  Report Type: 
  Country: None (occurrence: None)
  Receive Date: 20050805
  Receipt Date: 20050727
  Transmission Date: 20060218
  Serious: Yes (Other)
  Sender: FDA-Public Use
  Company Number: 2005107363

PATIENT
  Age: 32 Year
  Sex: Male

DRUGS (1)
  1. NEURONTIN [Suspect]
     Indication: BACK PAIN
     Dates: start: 20020101, end: 20030101

REACTIONS (5)
  - DRUG INEFFECTIVE [None]
  - INTENTIONAL MISUSE [None]
  - OVERDOSE [None]
  - ROAD TRAFFIC ACCIDENT [None]
  - SUICIDE ATTEMPT [None]
